FAERS Safety Report 24411026 (Version 1)
Quarter: 2024Q4

REPORT INFORMATION
  Report Type: Spontaneous
  Country: CN (occurrence: CN)
  Receive Date: 20241008
  Receipt Date: 20241008
  Transmission Date: 20250115
  Serious: Yes (Other)
  Sender: ALCON
  Company Number: CN-ALCON LABORATORIES-ALC2024CN004483

PATIENT
  Age: 53 Year
  Sex: Female
  Weight: 62 kg

DRUGS (1)
  1. FLUORESCEIN SODIUM [Suspect]
     Active Substance: FLUORESCEIN SODIUM
     Indication: Retinal vascular disorder
     Dosage: 5 ML, ONCE/SINGLE
     Route: 042
     Dates: start: 20240729, end: 20240729

REACTIONS (1)
  - Sinus rhythm [Recovering/Resolving]

NARRATIVE: CASE EVENT DATE: 20240729
